FAERS Safety Report 14661312 (Version 1)
Quarter: 2018Q1

REPORT INFORMATION
  Report Type: Spontaneous
  Country: CA (occurrence: CA)
  Receive Date: 20180320
  Receipt Date: 20180320
  Transmission Date: 20180509
  Serious: Yes (Other)
  Sender: FDA-Public Use
  Company Number: CA-FERRINGPH-2017FE04042

PATIENT

DRUGS (1)
  1. PICO-SALAX [Suspect]
     Active Substance: ANHYDROUS CITRIC ACID\MAGNESIUM OXIDE\SODIUM PICOSULFATE
     Indication: BOWEL PREPARATION
     Dosage: 13.5 MG
     Route: 048
     Dates: start: 20160609, end: 20160610

REACTIONS (1)
  - Urticaria [Recovered/Resolved]

NARRATIVE: CASE EVENT DATE: 20160609
